FAERS Safety Report 13341664 (Version 1)
Quarter: 2017Q1

REPORT INFORMATION
  Report Type: Spontaneous
  Country: US (occurrence: US)
  Receive Date: 20170316
  Receipt Date: 20170316
  Transmission Date: 20170428
  Serious: No
  Sender: FDA-Public Use
  Company Number: US-ROCHE-1732797

PATIENT
  Sex: Female

DRUGS (3)
  1. METRONIDAZOL [Concomitant]
     Active Substance: METRONIDAZOLE
     Route: 065
  2. ERIVEDGE [Suspect]
     Active Substance: VISMODEGIB
     Indication: BASAL CELL CARCINOMA
     Dosage: TAKE 1 CAPSULE BY MOUTH DAILY
     Route: 048
     Dates: start: 20160102
  3. PREDNISOLONE. [Concomitant]
     Active Substance: PREDNISOLONE
     Dosage: OPTHALMIC
     Route: 058

REACTIONS (1)
  - Muscle spasms [Not Recovered/Not Resolved]
